FAERS Safety Report 24456483 (Version 2)
Quarter: 2024Q4

REPORT INFORMATION
  Report Type: Spontaneous
  Country: JP (occurrence: JP)
  Receive Date: 20241017
  Receipt Date: 20241018
  Transmission Date: 20250114
  Serious: No
  Sender: ROCHE
  Company Number: JP-ROCHE-3507795

PATIENT
  Age: 4 Year
  Sex: Female

DRUGS (2)
  1. RITUXAN [Suspect]
     Active Substance: RITUXIMAB
     Indication: Coombs negative haemolytic anaemia
     Route: 041
  2. PREDNISOLONE [Concomitant]
     Active Substance: PREDNISOLONE
     Indication: Coombs negative haemolytic anaemia

REACTIONS (2)
  - Off label use [Unknown]
  - No adverse event [Unknown]
